FAERS Safety Report 4600237-2 (Version None)
Quarter: 2005Q1

REPORT INFORMATION
  Report Type: 
  Country: None (occurrence: None)
  Receive Date: 20050307
  Receipt Date: 20040913
  Transmission Date: 20050727
  Serious: Yes (Death, Hospitalization, Other)
  Sender: FDA-Public Use
  Company Number: 200420498BWH

PATIENT
  Age: 45 Year
  Sex: Male

DRUGS (9)
  1. AUGMENTIN '125' [Suspect]
     Indication: CHRONIC SINUSITIS
  2. AVELOX [Suspect]
     Indication: SINUSITIS
     Route: 048
  3. TEQUIN [Suspect]
     Indication: CHRONIC SINUSITIS
  4. CLINDAMYCIN HCL [Suspect]
     Indication: CHRONIC SINUSITIS
  5. ALLEGRA-D [Concomitant]
  6. FLONASE [Concomitant]
  7. NASONEX [Concomitant]
  8. PREDNISONE TAB [Concomitant]
  9. FLUCONAZOLE [Concomitant]

REACTIONS (33)
  - ACQUIRED IMMUNODEFICIENCY SYNDROME [None]
  - ASCITES [None]
  - ATELECTASIS [None]
  - BACTERIAL SEPSIS [None]
  - BLOOD SODIUM DECREASED [None]
  - CARDIAC ARREST [None]
  - CHEST PAIN [None]
  - CHRONIC HEPATITIS [None]
  - DIALYSIS [None]
  - DISSEMINATED INTRAVASCULAR COAGULATION [None]
  - DYSPNOEA [None]
  - ECCHYMOSIS [None]
  - GENERAL PHYSICAL HEALTH DETERIORATION [None]
  - HAEMORRHAGE [None]
  - HEPATIC ENZYME INCREASED [None]
  - HEPATIC FAILURE [None]
  - HEPATIC STEATOSIS [None]
  - HIV INFECTION [None]
  - INCREASED TENDENCY TO BRUISE [None]
  - JAUNDICE [None]
  - LABORATORY TEST ABNORMAL [None]
  - LEUKOPENIA [None]
  - LIVER DISORDER [None]
  - MULTI-ORGAN FAILURE [None]
  - PANCREATIC INSUFFICIENCY [None]
  - PANCYTOPENIA [None]
  - PNEUMOCYSTIS JIROVECI PNEUMONIA [None]
  - PULMONARY OEDEMA [None]
  - RENAL FAILURE [None]
  - RESPIRATORY FAILURE [None]
  - SPIDER NAEVUS [None]
  - THROMBOTIC THROMBOCYTOPENIC PURPURA [None]
  - TROPONIN INCREASED [None]
